FAERS Safety Report 6109160-8 (Version None)
Quarter: 2009Q1

REPORT INFORMATION
  Report Type: 
  Country: None (occurrence: None)
  Receive Date: 20090310
  Receipt Date: 20090305
  Transmission Date: 20090719
  Serious: Yes (Hospitalization)
  Sender: FDA-Public Use
  Company Number: GB-ABBOTT-09P-167-0560660-00

PATIENT
  Sex: Female

DRUGS (3)
  1. CLARITHROMYCIN [Suspect]
     Indication: LOWER RESPIRATORY TRACT INFECTION
     Dates: start: 20081201
  2. ETHINYL ESTRADIOL AND LEVONORGESTREL [Concomitant]
     Indication: ORAL CONTRACEPTION
     Dates: end: 20080101
  3. LEVOTHYROXINE SODIUM [Concomitant]
     Indication: HYPOTHYROIDISM
     Dates: start: 20080601

REACTIONS (2)
  - CHOLANGITIS [None]
  - JAUNDICE CHOLESTATIC [None]
